FAERS Safety Report 17213296 (Version 1)
Quarter: 2019Q4

REPORT INFORMATION
  Report Type: Other
  Country: TR (occurrence: TR)
  Receive Date: 20191230
  Receipt Date: 20191230
  Transmission Date: 20200122
  Serious: Yes (Life-Threatening, Hospitalization, Other)
  Sender: FDA-Public Use
  Company Number: TR-APPCO PHARMA LLC-2078307

PATIENT
  Age: 17 Year
  Sex: Female

DRUGS (1)
  1. MODAFINIL. [Suspect]
     Active Substance: MODAFINIL
     Indication: HYPERSOMNIA
     Route: 065

REACTIONS (6)
  - Toxicity to various agents [Unknown]
  - Brain injury [Recovered/Resolved]
  - Suicide attempt [Unknown]
  - Intentional overdose [Unknown]
  - Psychotic disorder [Recovered/Resolved]
  - Toxic encephalopathy [Recovered/Resolved]
